FAERS Safety Report 20477810 (Version 1)
Quarter: 2022Q1

REPORT INFORMATION
  Report Type: Spontaneous
  Country: IE (occurrence: IE)
  Receive Date: 20220216
  Receipt Date: 20220216
  Transmission Date: 20220423
  Serious: Yes (Other)
  Sender: FDA-Public Use
  Company Number: None

PATIENT

DRUGS (11)
  1. PREDNISOLONE [Suspect]
     Active Substance: PREDNISOLONE
     Indication: Myasthenia gravis
     Dosage: 50 MG OD PO X 3/52WILL GO TO 50 MG ONE DAY ALTERNATING WITH 40 MG THE NEXT DAY FOR TWO WEEKS, THEN 5
     Route: 048
     Dates: start: 202107
  2. PREDNISOLONE [Suspect]
     Active Substance: PREDNISOLONE
     Dosage: 40 MG
     Route: 048
  3. PREDNISOLONE [Suspect]
     Active Substance: PREDNISOLONE
     Dosage: 30 MG
     Route: 048
  4. Romax Once Weekly 70mg Tablets [Concomitant]
     Indication: Osteoporosis prophylaxis
     Dosage: 70 MG, WEEKLY
     Route: 048
  5. ESOMEPRAZOLE [Concomitant]
     Active Substance: ESOMEPRAZOLE
     Indication: Peptic ulcer
     Dosage: 40 MG, QD
     Route: 048
  6. RAMIPRIL (GENERIC) [Concomitant]
     Dosage: 5 MG, QD,1 NOCTE
     Dates: start: 202109
  7. Mestinon 60mg Tablets [Concomitant]
     Indication: Myasthenia gravis
     Dosage: 60 MG QID, WHICH IS HELPING TO CONTROL NEUROMUSCULAR WEAKNESS TOO AND FROM WHICH HE IS NOT GETTING S
     Route: 048
     Dates: start: 202107
  8. CELLCEPT [Concomitant]
     Active Substance: MYCOPHENOLATE MOFETIL
     Indication: Myasthenia gravis
     Dosage: 500 MG, BID
  9. IMMUNOGLOBULIN (G) [Concomitant]
     Indication: Myasthenia gravis
     Dosage: IVIG INFUSIONS
     Route: 041
  10. SIMVASTATIN (G) [Concomitant]
     Dosage: UNK
     Dates: start: 202106
  11. IMURAN [Concomitant]
     Active Substance: AZATHIOPRINE
     Indication: Myasthenia gravis
     Dosage: 25 MG

REACTIONS (6)
  - Agitation [Not Recovered/Not Resolved]
  - Condition aggravated [Not Recovered/Not Resolved]
  - Emotional distress [Not Recovered/Not Resolved]
  - Anxiety [Not Recovered/Not Resolved]
  - Depression [Not Recovered/Not Resolved]
  - Feeling jittery [Not Recovered/Not Resolved]

NARRATIVE: CASE EVENT DATE: 20210701
